FAERS Safety Report 10657374 (Version 1)
Quarter: 2014Q4

REPORT INFORMATION
  Report Type: Spontaneous
  Country: US (occurrence: None)
  Receive Date: 20141216
  Receipt Date: 20141216
  Transmission Date: 20150529
  Serious: Yes (Death, Hospitalization)
  Sender: FDA-Public Use
  Company Number: None

PATIENT
  Age: 60 Year
  Sex: Male
  Weight: 98.6 kg

DRUGS (1)
  1. IDARUBICIN [Suspect]
     Active Substance: IDARUBICIN
     Dates: end: 20141102

REACTIONS (3)
  - Cardio-respiratory arrest [None]
  - Hypotension [None]
  - Ejection fraction decreased [None]

NARRATIVE: CASE EVENT DATE: 20141207
